FAERS Safety Report 6771898-7 (Version None)
Quarter: 2010Q2

REPORT INFORMATION
  Report Type: 
  Country: None (occurrence: None)
  Receive Date: 20100616
  Receipt Date: 20100316
  Transmission Date: 20101027
  Serious: No
  Sender: FDA-Public Use
  Company Number: US-ASTRAZENECA-2010SE11490

PATIENT
  Age: 47 Year
  Sex: Female

DRUGS (4)
  1. ENTOCORT EC [Suspect]
     Indication: CROHN'S DISEASE
     Route: 048
     Dates: start: 20090301, end: 20100301
  2. PENTASA [Concomitant]
     Indication: CROHN'S DISEASE
  3. VITAMIN TAB [Concomitant]
  4. CALCIUM CARBONATE [Concomitant]

REACTIONS (3)
  - CONSTIPATION [None]
  - DRUG DOSE OMISSION [None]
  - PAIN [None]
